FAERS Safety Report 6501954-X (Version None)
Quarter: 2009Q4

REPORT INFORMATION
  Report Type: 
  Country: None (occurrence: None)
  Receive Date: 20091216
  Receipt Date: 20091202
  Transmission Date: 20100525
  Serious: Yes (Other)
  Sender: FDA-Public Use
  Company Number: GB-MYLANLABS-2009S1020786

PATIENT
  Age: 17 Year
  Sex: Male

DRUGS (7)
  1. FLUOXETINE [Suspect]
     Indication: OBSESSIVE-COMPULSIVE DISORDER
     Route: 048
     Dates: start: 19980101
  2. FLUOXETINE [Suspect]
     Indication: TOURETTE'S DISORDER
     Route: 048
     Dates: start: 19980101
  3. FLUOXETINE [Suspect]
     Route: 048
  4. FLUOXETINE [Suspect]
     Route: 048
  5. PROVIGIL [Suspect]
     Indication: SOMNOLENCE
     Dates: start: 20080501
  6. PROVIGIL [Suspect]
     Indication: NARCOLEPSY
     Dates: start: 20080501
  7. RISPERIDONE [Concomitant]
     Indication: OBSESSIVE-COMPULSIVE DISORDER
     Dates: start: 20000101

REACTIONS (5)
  - CONDITION AGGRAVATED [None]
  - DRUG INTERACTION [None]
  - OBSESSIVE-COMPULSIVE DISORDER [None]
  - THERAPEUTIC RESPONSE DECREASED [None]
  - TIC [None]
